FAERS Safety Report 7685794-4 (Version None)
Quarter: 2011Q3

REPORT INFORMATION
  Report Type: 
  Country: None (occurrence: None)
  Receive Date: 20110815
  Receipt Date: 20110815
  Transmission Date: 20111222
  Serious: Yes (Hospitalization)
  Sender: FDA-Public Use
  Company Number: None

PATIENT
  Age: 71 Year
  Sex: Male
  Weight: 76.203 kg

DRUGS (1)
  1. AVELOX [Suspect]
     Indication: EAR INFECTION
     Dosage: 100 MG
     Route: 048
     Dates: start: 20110716, end: 20110722

REACTIONS (4)
  - HEADACHE [None]
  - VOMITING [None]
  - PAIN IN JAW [None]
  - MIDDLE INSOMNIA [None]
